FAERS Safety Report 9016182 (Version 2)
Quarter: 2013Q2

REPORT INFORMATION
  Report Type: Spontaneous
  Country: US (occurrence: US)
  Receive Date: 20130116
  Receipt Date: 20130506
  Transmission Date: 20140414
  Serious: Yes (Hospitalization)
  Sender: FDA-Public Use
  Company Number: US-GILEAD-2013-0067820

PATIENT
  Age: 82 Year
  Sex: Male

DRUGS (1)
  1. LETAIRIS [Suspect]
     Indication: IDIOPATHIC PULMONARY FIBROSIS
     Dosage: 10 MG, QD
     Route: 048
     Dates: start: 20071206

REACTIONS (1)
  - Pneumonia [Unknown]
